FAERS Safety Report 7079230-9 (Version None)
Quarter: 2010Q4

REPORT INFORMATION
  Report Type: 
  Country: None (occurrence: None)
  Receive Date: 20101102
  Receipt Date: 20101026
  Transmission Date: 20110411
  Serious: Yes (Other)
  Sender: FDA-Public Use
  Company Number: US-ROCHE-737117

PATIENT
  Sex: Male

DRUGS (2)
  1. KLONOPIN [Suspect]
     Route: 065
  2. OXYCONTIN [Suspect]
     Route: 065

REACTIONS (2)
  - DRUG DEPENDENCE [None]
  - SELF INJURIOUS BEHAVIOUR [None]
